FAERS Safety Report 19236833 (Version 2)
Quarter: 2021Q2

REPORT INFORMATION
  Report Type: Report from Study
  Country: KR (occurrence: KR)
  Receive Date: 20210510
  Receipt Date: 20210518
  Transmission Date: 20210717
  Serious: Yes (Death, Hospitalization)
  Sender: FDA-Public Use
  Company Number: KR-GLAXOSMITHKLINE-KR2021GSK091795

PATIENT
  Age: 78 Year
  Sex: Male
  Weight: 69 kg

DRUGS (23)
  1. COBOLIMAB. [Suspect]
     Active Substance: COBOLIMAB
     Indication: NON-SMALL CELL LUNG CANCER
     Dosage: 115 ML
     Route: 042
     Dates: start: 20210222, end: 20210222
  2. COBOLIMAB. [Suspect]
     Active Substance: COBOLIMAB
     Dosage: 115 ML
     Route: 042
     Dates: start: 20210315, end: 20210315
  3. DOSTARLIMAB [Suspect]
     Active Substance: DOSTARLIMAB
     Dosage: UNK
     Route: 042
     Dates: start: 20210315, end: 20210315
  4. DOCETAXEL (NON?GSK COMPARATOR) [Suspect]
     Active Substance: DOCETAXEL
     Indication: NON-SMALL CELL LUNG CANCER
     Dosage: 75 MG/M2
     Route: 042
     Dates: start: 20210222, end: 20210222
  5. DOCETAXEL (NON?GSK COMPARATOR) [Suspect]
     Active Substance: DOCETAXEL
     Dosage: 55 MG/M2
     Route: 042
     Dates: start: 20210315, end: 20210315
  6. DOCETAXEL (NON?GSK COMPARATOR) [Suspect]
     Active Substance: DOCETAXEL
     Dosage: 55 MG/M2
     Route: 042
     Dates: start: 20210405, end: 20210405
  7. PANTOMED (PANTOPRAZOLE SODIUM SESQUIHYDRATE) [Concomitant]
     Active Substance: PANTOPRAZOLE SODIUM
     Indication: PROPHYLAXIS
     Dosage: 40 MG (FREQUENCY = ONCE DAILY)
     Route: 042
     Dates: start: 20210422
  8. AMMONIUM CHLORIDE + CHLORPHENIRAMINE MALEATE + DIHYDROCODEINE TARTRATE [Concomitant]
     Indication: PRODUCTIVE COUGH
     Dosage: 20 ML (FREQUENCY = AS NEEDED)
     Route: 048
     Dates: start: 20210121
  9. MYPOL (ACETAMINOPHEN + CODEINE PHOSPHATE + IBUPROFEN) [Concomitant]
     Active Substance: ACETAMINOPHEN\CODEINE\IBUPROFEN
     Dosage: 1 DF, TID
     Route: 048
     Dates: start: 20210308
  10. LASIX [Concomitant]
     Active Substance: FUROSEMIDE
     Indication: PROPHYLAXIS
     Dosage: 20 MG, BID
     Route: 042
     Dates: start: 20210423
  11. TARIVID OPHTHALMIC OINTMENT [Concomitant]
     Active Substance: OFLOXACIN
     Indication: RASH
     Dosage: UNK UNK, PRN
     Route: 061
     Dates: start: 20210215
  12. POTASSIUM CHLORIDE. [Concomitant]
     Active Substance: POTASSIUM CHLORIDE
     Indication: PROPHYLAXIS
     Dosage: 20 MEQ (FREQUENCY = ONCE DAILY)
     Route: 042
     Dates: start: 20210423, end: 20210428
  13. MYPOL (ACETAMINOPHEN + CODEINE PHOSPHATE + IBUPROFEN) [Concomitant]
     Active Substance: ACETAMINOPHEN\CODEINE\IBUPROFEN
     Indication: ARTHRALGIA
     Dosage: 1 DF, PRN
     Route: 048
     Dates: start: 20210302, end: 20210304
  14. 10% DEXTROSE INTRAVENOUS SOLUTION [Concomitant]
     Indication: PROPHYLAXIS
     Dosage: 1000 ML (FREQUENCY = ONCE DAILY)
     Route: 042
     Dates: start: 20210423
  15. COBOLIMAB. [Suspect]
     Active Substance: COBOLIMAB
     Dosage: 115 ML
     Route: 042
     Dates: start: 20210405, end: 20210405
  16. DOSTARLIMAB [Suspect]
     Active Substance: DOSTARLIMAB
     Indication: NON-SMALL CELL LUNG CANCER
     Dosage: UNK
     Route: 042
     Dates: start: 20210222, end: 20210222
  17. FINASTERIDE. [Concomitant]
     Active Substance: FINASTERIDE
     Indication: BENIGN PROSTATIC HYPERPLASIA
     Dosage: 5 MG (FREQUENCY = ONCE DAILY)
     Route: 048
     Dates: start: 2019
  18. SODIUM CHLORIDE. [Concomitant]
     Active Substance: SODIUM CHLORIDE
     Indication: PROPHYLAXIS
     Dosage: 80 MEQ (FREQUENCY = ONCE DAILY)
     Route: 042
     Dates: start: 20210423
  19. THIAMINE HYDROCHLORIDE. [Concomitant]
     Active Substance: THIAMINE HYDROCHLORIDE
     Indication: VITAMIN SUPPLEMENTATION
     Dosage: 200 MG (FREQUENCY = TWICE DAILY)
     Route: 042
     Dates: start: 20210426, end: 20210428
  20. INTRALIPID [Concomitant]
     Active Substance: EGG PHOSPHOLIPIDS\GLYCERIN\SOYBEAN OIL
     Indication: PROPHYLAXIS
     Dosage: 250 ML (FREQUENCY = ONCE DAILY)
     Route: 042
     Dates: start: 20210428
  21. DOSTARLIMAB [Suspect]
     Active Substance: DOSTARLIMAB
     Dosage: UNK
     Route: 042
     Dates: start: 20210405, end: 20210405
  22. TANTUM [Concomitant]
     Active Substance: BENZYDAMINE HYDROCHLORIDE
     Indication: PROPHYLAXIS
     Dosage: UNK UNK, PRN
     Route: 002
     Dates: start: 20210222
  23. ASCORBIC [Concomitant]
     Indication: VITAMIN SUPPLEMENTATION
     Dosage: 1.5 G, QID
     Route: 042
     Dates: start: 20210426, end: 20210429

REACTIONS (1)
  - Pneumonia [Fatal]

NARRATIVE: CASE EVENT DATE: 20210421
